FAERS Safety Report 15131609 (Version 1)
Quarter: 2018Q3

REPORT INFORMATION
  Report Type: Spontaneous
  Country: US (occurrence: US)
  Receive Date: 20180711
  Receipt Date: 20180711
  Transmission Date: 20181010
  Serious: Yes (Other)
  Sender: FDA-Public Use
  Company Number: US-MEDICURE INC.-2051785

PATIENT
  Age: 83 Year
  Sex: Male

DRUGS (10)
  1. BRILINTA [Concomitant]
     Active Substance: TICAGRELOR
  2. EFFIENT [Concomitant]
     Active Substance: PRASUGREL HYDROCHLORIDE
  3. HEPARIN [Concomitant]
     Active Substance: HEPARIN SODIUM
  4. IGG (IMMUNIGLOBULIN) [Concomitant]
  5. ASPIRIN. [Concomitant]
     Active Substance: ASPIRIN
  6. ANGIOMAX [Concomitant]
     Active Substance: BIVALIRUDIN
  7. AGGRASTAT [Suspect]
     Active Substance: TIROFIBAN HYDROCHLORIDE
     Indication: ANTIPLATELET THERAPY
     Route: 040
  8. IGG (IMMUNOGLOBULIN) [Concomitant]
  9. CORTICAL STEROIDES [Concomitant]
  10. IGG (IMMUNOGLOBULIN) [Concomitant]

REACTIONS (1)
  - Thrombocytopenia [Recovered/Resolved]
